FAERS Safety Report 8823850 (Version 2)
Quarter: 2013Q4

REPORT INFORMATION
  Report Type: Spontaneous
  Country: US (occurrence: US)
  Receive Date: 20121003
  Receipt Date: 20131003
  Transmission Date: 20140711
  Serious: Yes (Hospitalization, Other)
  Sender: FDA-Public Use
  Company Number: US-009507513-1210USA000797

PATIENT
  Sex: Female

DRUGS (1)
  1. MAXALT [Suspect]
     Route: 048

REACTIONS (1)
  - Multiple sclerosis [Unknown]
